FAERS Safety Report 12072415 (Version 2)
Quarter: 2016Q1

REPORT INFORMATION
  Report Type: Spontaneous
  Country: FR (occurrence: FR)
  Receive Date: 20160212
  Receipt Date: 20160217
  Transmission Date: 20160526
  Serious: Yes (Hospitalization)
  Sender: FDA-Public Use
  Company Number: FR-ASTELLAS-2016US000020

PATIENT
  Age: 66 Year
  Sex: Female

DRUGS (1)
  1. VESICARE [Suspect]
     Active Substance: SOLIFENACIN SUCCINATE
     Indication: URINARY INCONTINENCE
     Route: 048
     Dates: end: 201512

REACTIONS (3)
  - Drug ineffective [Unknown]
  - Bladder neck suspension [Unknown]
  - Hospitalisation [Unknown]

NARRATIVE: CASE EVENT DATE: 201512
